FAERS Safety Report 4582127-7 (Version None)
Quarter: 2005Q1

REPORT INFORMATION
  Report Type: 
  Country: None (occurrence: None)
  Receive Date: 20050119
  Receipt Date: 20040309
  Transmission Date: 20050727
  Serious: Yes (Hospitalization)
  Sender: FDA-Public Use
  Company Number: A03200400724

PATIENT
  Age: 76 Year
  Sex: Female
  Weight: 60.782 kg

DRUGS (15)
  1. PLAVIX [Suspect]
     Dosage: 75 MG QD - ORAL
     Route: 048
     Dates: start: 20030612, end: 20040113
  2. COREG [Suspect]
     Indication: CARDIAC FAILURE CONGESTIVE
     Dosage: 25 MG BID - ORAL
     Route: 048
     Dates: start: 20031119, end: 20040114
  3. FUROSEMIDE [Concomitant]
  4. WARFARIN SODIUM [Concomitant]
  5. LOSARTAN POTASSIUM [Concomitant]
  6. ACETYLSALICYLIC ACID [Concomitant]
  7. LEVOTHYROXINE SODIUM [Concomitant]
  8. POTASSIUM CHLORIDE [Concomitant]
  9. ISOSORBIDE DINITRATE [Concomitant]
  10. FOLIC ACID [Concomitant]
  11. CYANOCOBALAMIN [Concomitant]
  12. SIMVASTATIN [Concomitant]
  13. AMIODARONE HYDROCHLORIDE [Concomitant]
  14. NICOTINIC ACID [Concomitant]
  15. TRAMADOL HCL [Concomitant]

REACTIONS (7)
  - ASTHENIA [None]
  - CONTUSION [None]
  - DRUG INTERACTION [None]
  - INTERNATIONAL NORMALISED RATIO INCREASED [None]
  - PAIN IN EXTREMITY [None]
  - PLATELET COUNT DECREASED [None]
  - RECTAL HAEMORRHAGE [None]
